FAERS Safety Report 9209810 (Version 1)
Quarter: 2013Q2

REPORT INFORMATION
  Report Type: Spontaneous
  Country: US (occurrence: None)
  Receive Date: 20130403
  Receipt Date: 20130403
  Transmission Date: 20140414
  Serious: Yes (Life-Threatening, Disabling)
  Sender: FDA-Public Use
  Company Number: None

PATIENT
  Sex: Female
  Weight: 56.7 kg

DRUGS (1)
  1. ROCALTROL [Suspect]
     Indication: HYPOPARATHYROIDISM
     Dates: start: 1996, end: 2013

REACTIONS (10)
  - Toxicity to various agents [None]
  - Nausea [None]
  - Vomiting [None]
  - Hypercalcaemia [None]
  - Nephrolithiasis [None]
  - Heart valve calcification [None]
  - Soft tissue injury [None]
  - Cerebral cyst [None]
  - Incorrect drug administration duration [None]
  - Drug administration error [None]
